FAERS Safety Report 8778902 (Version 1)
Quarter: 2012Q4

REPORT INFORMATION
  Report Type: 
  Country: US (occurrence: US)
  Receive Date: 20120907
  Receipt Date: 20120907
  Transmission Date: 20130627
  Serious: Yes (Life-Threatening, Other)
  Sender: FDA-Public Use
  Company Number: US-ELI_LILLY_AND_COMPANY-US201209001199

PATIENT

DRUGS (1)
  1. OLANZAPINE [Suspect]
     Dosage: UNK

REACTIONS (2)
  - Toxicity to various agents [Unknown]
  - Off label use [Unknown]
